FAERS Safety Report 24701533 (Version 1)
Quarter: 2024Q4

REPORT INFORMATION
  Report Type: Spontaneous
  Country: GB (occurrence: GB)
  Receive Date: 20241205
  Receipt Date: 20241205
  Transmission Date: 20250114
  Serious: Yes (Other)
  Sender: TEVA
  Company Number: GB-MHRA-WEBRADR-202411270940150710-BSPCF

PATIENT
  Age: 86 Year
  Sex: Female

DRUGS (1)
  1. IRBESARTAN [Suspect]
     Active Substance: IRBESARTAN
     Indication: Product used for unknown indication
     Route: 065

REACTIONS (1)
  - Confusional state [Recovered/Resolved]
